FAERS Safety Report 5164951-5 (Version None)
Quarter: 2006Q4

REPORT INFORMATION
  Report Type: 
  Country: None (occurrence: None)
  Receive Date: 20061124
  Receipt Date: 20061113
  Transmission Date: 20070319
  Serious: Yes (Other)
  Sender: FDA-Public Use
  Company Number: 2006141267

PATIENT
  Sex: Male

DRUGS (1)
  1. AMLODIPINE [Suspect]
     Dosage: ORAL
     Route: 048

REACTIONS (2)
  - DIABETIC NEUROPATHY [None]
  - PROTEINURIA [None]
